FAERS Safety Report 16050082 (Version 1)
Quarter: 2019Q1

REPORT INFORMATION
  Report Type: Spontaneous
  Country: US (occurrence: US)
  Receive Date: 20190308
  Receipt Date: 20190308
  Transmission Date: 20190418
  Serious: No
  Sender: FDA-Public Use
  Company Number: US-ASTRAZENECA-2019SE23994

PATIENT
  Age: 70 Year
  Sex: Female
  Weight: 74.8 kg

DRUGS (4)
  1. SYMBICORT [Suspect]
     Active Substance: BUDESONIDE\FORMOTEROL FUMARATE DIHYDRATE
     Indication: ASTHMA
     Dosage: 160/4.5 MCG, TWO INHALATIONS, TWICE DAILY
     Route: 055
     Dates: start: 2017
  2. SYMBICORT [Suspect]
     Active Substance: BUDESONIDE\FORMOTEROL FUMARATE DIHYDRATE
     Indication: ASTHMA
     Dosage: 80/4.5 MCG, TWO INHALATIONS, TWICE DAILY
     Route: 055
     Dates: start: 20190205
  3. PROAIR HFA [Concomitant]
     Active Substance: ALBUTEROL SULFATE
  4. PULMICORT FLEXHALER [Suspect]
     Active Substance: BUDESONIDE
     Indication: ASTHMA
     Route: 055
     Dates: start: 201801

REACTIONS (10)
  - Influenza [Recovered/Resolved]
  - Expired product administered [Not Recovered/Not Resolved]
  - Dyspnoea [Not Recovered/Not Resolved]
  - Cataract [Not Recovered/Not Resolved]
  - Upper respiratory tract infection [Not Recovered/Not Resolved]
  - Pyrexia [Not Recovered/Not Resolved]
  - Chest discomfort [Not Recovered/Not Resolved]
  - Visual acuity reduced [Not Recovered/Not Resolved]
  - Pneumonia [Unknown]
  - Wheezing [Recovered/Resolved]

NARRATIVE: CASE EVENT DATE: 201901
